FAERS Safety Report 11477795 (Version 1)
Quarter: 2015Q3

REPORT INFORMATION
  Report Type: Spontaneous
  Country: US (occurrence: US)
  Receive Date: 20150909
  Receipt Date: 20150909
  Transmission Date: 20151125
  Serious: No
  Sender: FDA-Public Use
  Company Number: US-JAZZ-2014-US-010710

PATIENT
  Sex: Female
  Weight: 61.67 kg

DRUGS (11)
  1. REPLACEMENT HORMONES [Concomitant]
     Indication: HORMONE REPLACEMENT THERAPY
     Route: 048
  2. THYROID MEDICATIONS [Concomitant]
     Indication: HYPOTHYROIDISM
     Route: 048
  3. CYCLOBENZAPRINE [Concomitant]
     Active Substance: CYCLOBENZAPRINE
     Indication: SLEEP DISORDER
     Dosage: UNK
     Route: 048
  4. XYREM [Suspect]
     Active Substance: SODIUM OXYBATE
     Dosage: 1.5 G, BID
     Route: 048
     Dates: start: 2014, end: 2014
  5. XYREM [Suspect]
     Active Substance: SODIUM OXYBATE
     Indication: FIBROMYALGIA
     Dosage: 2.25 G, BID
     Route: 048
     Dates: start: 20140710, end: 2014
  6. XYREM [Suspect]
     Active Substance: SODIUM OXYBATE
     Dosage: 0.75 G, BID
     Route: 048
     Dates: start: 2014, end: 2014
  7. XYREM [Suspect]
     Active Substance: SODIUM OXYBATE
     Dosage: 1.5 G, FIRST DOSE
     Route: 048
     Dates: start: 2014
  8. XYREM [Suspect]
     Active Substance: SODIUM OXYBATE
     Dosage: 2.25 G, SECOND DOSE
     Route: 048
     Dates: start: 2014
  9. TEMAZEPAM. [Concomitant]
     Active Substance: TEMAZEPAM
     Indication: SLEEP DISORDER
     Dosage: UNK
     Route: 048
  10. NORTRIPTYLINE [Concomitant]
     Active Substance: NORTRIPTYLINE
     Indication: FIBROMYALGIA
     Dosage: 20 MG, QD
     Route: 048
  11. ZYRTEC [Concomitant]
     Active Substance: CETIRIZINE HYDROCHLORIDE
     Indication: HYPERSENSITIVITY
     Route: 048

REACTIONS (4)
  - Intentional product misuse [Unknown]
  - Product use issue [Unknown]
  - Therapeutic response unexpected [Unknown]
  - Initial insomnia [Not Recovered/Not Resolved]

NARRATIVE: CASE EVENT DATE: 2014
